FAERS Safety Report 5144336-8 (Version None)
Quarter: 2006Q4

REPORT INFORMATION
  Report Type: 
  Country: None (occurrence: None)
  Receive Date: 20061030
  Receipt Date: 20061017
  Transmission Date: 20070319
  Serious: Yes (Other)
  Sender: FDA-Public Use
  Company Number: US200610002903

PATIENT
  Sex: Female

DRUGS (3)
  1. FORTEO [Suspect]
     Indication: OSTEOPOROSIS
  2. FORTEO PEN (FORTEO PEN)) PEN, DISPOSABLE [Concomitant]
  3. PREDNISONE TAB [Concomitant]

REACTIONS (1)
  - IDIOPATHIC PULMONARY FIBROSIS [None]
